FAERS Safety Report 21796764 (Version 1)
Quarter: 2022Q4

REPORT INFORMATION
  Report Type: Report from Study
  Country: US (occurrence: US)
  Receive Date: 20221230
  Receipt Date: 20221230
  Transmission Date: 20230113
  Serious: Yes (Hospitalization, Other)
  Sender: FDA-Public Use
  Company Number: US-002147023-NVSC2022US298594

PATIENT
  Sex: Male

DRUGS (2)
  1. ENTRESTO [Suspect]
     Active Substance: SACUBITRIL\VALSARTAN
     Indication: Cardiac failure
     Dosage: 97.103, BID (97-103)
     Route: 048
  2. ENTRESTO [Suspect]
     Active Substance: SACUBITRIL\VALSARTAN
     Dosage: 24.26, BID (24-26)
     Route: 048

REACTIONS (5)
  - Cardiac failure [Unknown]
  - Cerebrovascular accident [Unknown]
  - Blood creatinine increased [Unknown]
  - Hypotension [Unknown]
  - Dizziness [Unknown]
